FAERS Safety Report 5573529-0 (Version None)
Quarter: 2007Q4

REPORT INFORMATION
  Report Type: 
  Country: None (occurrence: None)
  Receive Date: 20071226
  Receipt Date: 20071218
  Transmission Date: 20080405
  Serious: Yes (Hospitalization)
  Sender: FDA-Public Use
  Company Number: FR-AVENTIS-200714079FR

PATIENT
  Age: 77 Year
  Sex: Male

DRUGS (9)
  1. LASIX [Suspect]
     Route: 048
     Dates: end: 20070702
  2. TRIATEC                            /00885601/ [Suspect]
     Route: 048
     Dates: end: 20070101
  3. ALDACTONE [Suspect]
     Route: 048
     Dates: end: 20070625
  4. ALDACTONE [Suspect]
     Route: 048
     Dates: start: 20070626, end: 20070701
  5. CORDARONE [Concomitant]
     Route: 048
  6. ZANIDIP [Concomitant]
     Route: 048
  7. JOSIR [Concomitant]
     Route: 048
  8. GLUCOPHAGE [Concomitant]
     Route: 048
     Dates: end: 20070630
  9. PREVISCAN                          /00789001/ [Concomitant]
     Route: 048
     Dates: end: 20070630

REACTIONS (2)
  - DRUG INTERACTION [None]
  - RENAL FAILURE ACUTE [None]
